FAERS Safety Report 4819441-3 (Version None)
Quarter: 2005Q4

REPORT INFORMATION
  Report Type: 
  Country: None (occurrence: None)
  Receive Date: 20051103
  Receipt Date: 20051025
  Transmission Date: 20060501
  Serious: Yes (Hospitalization)
  Sender: FDA-Public Use
  Company Number: US-JNJFOC-20051005604

PATIENT
  Age: 15 Month
  Sex: Male

DRUGS (3)
  1. ACETAMINOPHEN [Suspect]
  2. ACETAMINOPHEN [Suspect]
  3. IBUPROFEN [Concomitant]

REACTIONS (2)
  - DRUG TOXICITY [None]
  - HEPATIC FUNCTION ABNORMAL [None]
